FAERS Safety Report 12692461 (Version 1)
Quarter: 2016Q3

REPORT INFORMATION
  Report Type: Spontaneous
  Country: US (occurrence: US)
  Receive Date: 20160829
  Receipt Date: 20160829
  Transmission Date: 20161109
  Serious: No
  Sender: FDA-Public Use
  Company Number: US-AMGEN-USASP2016106319

PATIENT
  Age: 53 Year
  Sex: Female

DRUGS (1)
  1. ENBREL [Suspect]
     Active Substance: ETANERCEPT
     Indication: RHEUMATOID ARTHRITIS
     Dosage: UNK UNK, WEEKLY
     Route: 065

REACTIONS (12)
  - Nerve compression [Unknown]
  - Rash [Unknown]
  - Pain [Unknown]
  - Injury [Unknown]
  - Investigation abnormal [Unknown]
  - Vision blurred [Unknown]
  - Intervertebral disc protrusion [Unknown]
  - Arthralgia [Unknown]
  - Feeling abnormal [Unknown]
  - Road traffic accident [Unknown]
  - Intentional product misuse [Unknown]
  - Contusion [Unknown]

NARRATIVE: CASE EVENT DATE: 2014
